FAERS Safety Report 8048487-X (Version None)
Quarter: 2012Q1

REPORT INFORMATION
  Report Type: 
  Country: None (occurrence: None)
  Receive Date: 20120117
  Receipt Date: 20120110
  Transmission Date: 20120608
  Serious: No
  Sender: FDA-Public Use
  Company Number: US-PFIZER INC-2012009373

PATIENT
  Sex: Female

DRUGS (5)
  1. FLAGYL [Suspect]
  2. DARVON [Suspect]
  3. CONTRAST MEDIA [Suspect]
  4. ZINC SULFATE [Suspect]
  5. POTASSIUM PENICILLIN G [Suspect]

REACTIONS (1)
  - DRUG HYPERSENSITIVITY [None]
